FAERS Safety Report 10225126 (Version 2)
Quarter: 2016Q1

REPORT INFORMATION
  Report Type: Spontaneous
  Country: US (occurrence: US)
  Receive Date: 20140609
  Receipt Date: 20160315
  Transmission Date: 20160525
  Serious: Yes (Hospitalization)
  Sender: FDA-Public Use
  Company Number: US-BAYER-2014-082950

PATIENT
  Age: 28 Year
  Sex: Female
  Weight: 142.86 kg

DRUGS (3)
  1. FRUSOL [Concomitant]
     Dosage: UNK
     Dates: start: 2010
  2. MIRENA [Suspect]
     Active Substance: LEVONORGESTREL
     Indication: CONTRACEPTION
     Dosage: 20 MCG/24HR, CONT
     Route: 015
     Dates: start: 20111206, end: 20120511
  3. MIRENA [Suspect]
     Active Substance: LEVONORGESTREL
     Indication: MENORRHAGIA

REACTIONS (8)
  - Device issue [None]
  - Abdominal pain [Not Recovered/Not Resolved]
  - Embedded device [Not Recovered/Not Resolved]
  - Procedural pain [None]
  - Injury [Not Recovered/Not Resolved]
  - Medical device pain [None]
  - Drug ineffective [None]
  - Post procedural discomfort [None]

NARRATIVE: CASE EVENT DATE: 20111227
